FAERS Safety Report 9634101 (Version 1)
Quarter: 2013Q4

REPORT INFORMATION
  Report Type: Spontaneous
  Country: US (occurrence: US)
  Receive Date: 20131021
  Receipt Date: 20131021
  Transmission Date: 20140711
  Serious: Yes (Other)
  Sender: FDA-Public Use
  Company Number: US-SA-2013SA104140

PATIENT
  Sex: Male

DRUGS (4)
  1. AVAPRO [Suspect]
     Route: 065
     Dates: start: 1997
  2. PLAVIX [Suspect]
     Route: 065
  3. METOPROLOL TARTRATE [Suspect]
     Route: 065
  4. NORVASC [Suspect]
     Route: 065

REACTIONS (2)
  - Cardiac disorder [Unknown]
  - Cerebrovascular accident [Unknown]
